FAERS Safety Report 4338814-9 (Version None)
Quarter: 2004Q1

REPORT INFORMATION
  Report Type: 
  Country: None (occurrence: None)
  Receive Date: 20040329
  Receipt Date: 20040210
  Transmission Date: 20041129
  Serious: No
  Sender: FDA-Public Use
  Company Number: 04P-163-0249976-00

PATIENT
  Age: 66 Year
  Sex: Female
  Weight: 111.1313 kg

DRUGS (7)
  1. HUMIRA [Suspect]
     Indication: RHEUMATOID ARTHRITIS
     Dosage: 40 MG, 1IN 2 WK, SUBCUTANEOUS
     Route: 058
     Dates: start: 20031201
  2. METHOTREXATE SODIUM [Concomitant]
  3. BUCINDOLOL HYDROCHLORIDE [Concomitant]
  4. FOLIC ACID [Concomitant]
  5. VALSARTAN [Concomitant]
  6. DARVOCET [Concomitant]
  7. ATORVASTATIN [Concomitant]

REACTIONS (2)
  - BLOOD PRESSURE DECREASED [None]
  - HYPOTRICHOSIS [None]
